FAERS Safety Report 7957400-2 (Version None)
Quarter: 2011Q4

REPORT INFORMATION
  Report Type: 
  Country: None (occurrence: None)
  Receive Date: 20111205
  Receipt Date: 20111124
  Transmission Date: 20120403
  Serious: Yes (Hospitalization)
  Sender: FDA-Public Use
  Company Number: JP-MERCK-1105USA02013

PATIENT
  Age: 64 Year
  Sex: Male
  Weight: 45 kg

DRUGS (1)
  1. HYZAAR [Suspect]
     Route: 048
     Dates: start: 20101101, end: 20110401

REACTIONS (4)
  - LIVER DISORDER [None]
  - GAMMA-GLUTAMYLTRANSFERASE INCREASED [None]
  - ASPARTATE AMINOTRANSFERASE INCREASED [None]
  - ALANINE AMINOTRANSFERASE INCREASED [None]
